FAERS Safety Report 9378908 (Version 1)
Quarter: 2013Q1

REPORT INFORMATION
  Report Type: Spontaneous
  Country: IN (occurrence: None)
  Receive Date: 20121109
  Receipt Date: 20121109
  Transmission Date: 20140127
  Serious: Yes (Death)
  Sender: FDA-Public Use
  Company Number: 2012S1000320

PATIENT
  Age: 62 Year
  Sex: Female

DRUGS (1)
  1. CUBICIN (DAPTOMYCIN) [Suspect]
     Indication: PRODUCT USED FOR UNKNOWN INDICATION
     Route: 042
     Dates: start: 20110928

REACTIONS (2)
  - Renal failure acute [None]
  - Hypotension [None]
